FAERS Safety Report 17173104 (Version 1)
Quarter: 2019Q4

REPORT INFORMATION
  Report Type: Spontaneous
  Country: BR (occurrence: BR)
  Receive Date: 20191218
  Receipt Date: 20191218
  Transmission Date: 20200122
  Serious: Yes (Other)
  Sender: FDA-Public Use
  Company Number: NVSC2019BR072782

PATIENT
  Age: 38 Year
  Sex: Female

DRUGS (2)
  1. LECTRUM [Suspect]
     Active Substance: LEUPROLIDE ACETATE
     Indication: LEIOMYOMA
  2. LECTRUM [Suspect]
     Active Substance: LEUPROLIDE ACETATE
     Indication: ENDOMETRIOSIS
     Dosage: UNK UNK, QMO (EACH 30 DAYS)
     Route: 065

REACTIONS (3)
  - Product leakage [Unknown]
  - Product packaging issue [Unknown]
  - Inappropriate schedule of product administration [Unknown]

NARRATIVE: CASE EVENT DATE: 20191210
